FAERS Safety Report 6574211-3 (Version None)
Quarter: 2010Q1

REPORT INFORMATION
  Report Type: 
  Country: None (occurrence: None)
  Receive Date: 20100201
  Receipt Date: 20100119
  Transmission Date: 20100710
  Serious: Yes (Hospitalization)
  Sender: FDA-Public Use
  Company Number: 230030J10CAN

PATIENT
  Sex: Male

DRUGS (4)
  1. REBIF [Suspect]
     Indication: RELAPSING-REMITTING MULTIPLE SCLEROSIS
     Dosage: 44 MCG, 3 IN 1 WEEKS
     Dates: start: 20060215
  2. ASPIRIN [Concomitant]
  3. SENOSIBRATE (OTHER CHOLESTEROL AND TRIGLYCERIDE REDUCERS) [Concomitant]
  4. DRUG FOR HIGH BLOOD PRESSURE (ANTIHYPERTENSIVES) [Concomitant]

REACTIONS (3)
  - ARTERIAL OCCLUSIVE DISEASE [None]
  - STRESS [None]
  - STRESS AT WORK [None]
